FAERS Safety Report 6466015-7 (Version None)
Quarter: 2009Q4

REPORT INFORMATION
  Report Type: 
  Country: None (occurrence: None)
  Receive Date: 20091202
  Receipt Date: 20091125
  Transmission Date: 20100525
  Serious: Yes (Disabling)
  Sender: FDA-Public Use
  Company Number: GB-TEVA-216270ISR

PATIENT
  Age: 89 Year
  Sex: Male
  Weight: 88 kg

DRUGS (1)
  1. TRAMADOL HCL [Suspect]
     Indication: ARTHRALGIA
     Route: 048
     Dates: start: 20091005, end: 20091012

REACTIONS (1)
  - DELIRIUM [None]
